FAERS Safety Report 9086286 (Version 1)
Quarter: 2013Q1

REPORT INFORMATION
  Report Type: Report from Study
  Country: US (occurrence: US)
  Receive Date: 20130131
  Receipt Date: 20130131
  Transmission Date: 20140127
  Serious: No
  Sender: FDA-Public Use
  Company Number: US-ABBOTT-12P-163-0991267-00

PATIENT
  Age: 48 Year
  Sex: Female

DRUGS (11)
  1. HUMIRA [Suspect]
     Indication: CROHN^S DISEASE
     Dosage: LOADING DOSE
     Dates: start: 20120925
  2. AZATHIOPRINE [Concomitant]
     Indication: CROHN^S DISEASE
     Route: 048
  3. LIDOCAINE [Concomitant]
     Indication: ILL-DEFINED DISORDER
     Route: 061
  4. HYDROCODONE ACETAMINOPHEN [Concomitant]
     Indication: PAIN
     Dosage: 5MG/500MG 2 TABS DAILY AS NEEDED
     Route: 048
  5. REMERON [Concomitant]
     Indication: INSOMNIA
     Dosage: 15MG DAILY AT BEDTIME
     Route: 048
  6. POTASSIUM CHLORIDE [Concomitant]
     Indication: PRODUCT USED FOR UNKNOWN INDICATION
  7. TRAMADOL [Concomitant]
     Indication: PAIN
     Dosage: TWICE DAILY AS NEEDED
  8. PANTOPRAZOLE [Concomitant]
     Indication: GASTRIC DISORDER
     Dosage: 40MG DAILY 30 MINUTES BEFORE MEALS
     Route: 048
  9. XANAX [Concomitant]
     Indication: ANXIETY
     Route: 048
  10. ASACOL [Concomitant]
     Indication: CROHN^S DISEASE
     Dosage: 3 TABS TWICE DAILY
     Route: 048
  11. VITAMINS [Concomitant]
     Indication: SUPPLEMENTATION THERAPY
     Dosage: DAILY

REACTIONS (3)
  - Crying [Recovered/Resolved]
  - Injection site pain [Recovered/Resolved]
  - Emotional disorder [Recovered/Resolved]
